FAERS Safety Report 5245323-1 (Version None)
Quarter: 2007Q1

REPORT INFORMATION
  Report Type: 
  Country: None (occurrence: None)
  Receive Date: 20070223
  Receipt Date: 20070221
  Transmission Date: 20070707
  Serious: Yes (Hospitalization)
  Sender: FDA-Public Use
  Company Number: FR-GLAXOSMITHKLINE-B0459238A

PATIENT
  Age: 91 Year
  Sex: Female
  Weight: 65 kg

DRUGS (5)
  1. AMOXICILLIN [Suspect]
     Dosage: 1G THREE TIMES PER DAY
     Route: 030
     Dates: start: 20070107, end: 20070109
  2. AUGMENTIN '125' [Suspect]
     Dosage: 1G THREE TIMES PER DAY
     Route: 042
     Dates: start: 20070110
  3. SINTROM [Suspect]
     Dosage: 2MG PER DAY
     Route: 048
  4. TAREG [Concomitant]
     Indication: ESSENTIAL HYPERTENSION
     Dosage: 80MG PER DAY
     Route: 048
  5. AMIODARONE HCL [Concomitant]
     Dosage: 200MG PER DAY
     Route: 048

REACTIONS (3)
  - DRUG INTERACTION [None]
  - INTERNATIONAL NORMALISED RATIO INCREASED [None]
  - PROTHROMBIN TIME PROLONGED [None]
